FAERS Safety Report 8886654 (Version 1)
Quarter: 2012Q4

REPORT INFORMATION
  Report Type: 
  Country: PL (occurrence: PL)
  Receive Date: 20121105
  Receipt Date: 20121105
  Transmission Date: 20130627
  Serious: Yes (Hospitalization)
  Sender: FDA-Public Use
  Company Number: PHHY2012PL098880

PATIENT
  Age: 30 Year
  Sex: Female

DRUGS (2)
  1. PHENTERMINE [Suspect]
     Indication: WEIGHT DECREASED
  2. ANAGRELIDE [Suspect]
     Indication: ESSENTIAL THROMBOCYTHAEMIA
     Dosage: 2 mg, per day

REACTIONS (5)
  - Stress cardiomyopathy [Recovered/Resolved]
  - Myocardial ischaemia [Recovered/Resolved]
  - Arteriospasm coronary [Recovered/Resolved]
  - Chest pain [Recovered/Resolved]
  - Dyspnoea [Recovered/Resolved]
